FAERS Safety Report 5924498-2 (Version None)
Quarter: 2008Q3

REPORT INFORMATION
  Report Type: 
  Country: None (occurrence: None)
  Receive Date: 20080909
  Receipt Date: 20080314
  Transmission Date: 20090109
  Serious: Yes (Death)
  Sender: FDA-Public Use
  Company Number: 163-20785-08020982

PATIENT
  Age: 52 Year
  Sex: Male

DRUGS (2)
  1. THALOMID [Suspect]
     Indication: LICHENIFICATION
     Dosage: 100 MG, 1 IN 1 D, ORAL
     Route: 048
     Dates: start: 20080205, end: 20080210
  2. THALOMID [Suspect]
     Indication: NEURODERMATITIS
     Dosage: 100 MG, 1 IN 1 D, ORAL
     Route: 048
     Dates: start: 20080205, end: 20080210

REACTIONS (2)
  - CARDIAC FAILURE [None]
  - MYOCARDIAL INFARCTION [None]
